FAERS Safety Report 4353116-2 (Version None)
Quarter: 2004Q2

REPORT INFORMATION
  Report Type: 
  Country: None (occurrence: None)
  Receive Date: 20040430
  Receipt Date: 20040120
  Transmission Date: 20050107
  Serious: No
  Sender: FDA-Public Use
  Company Number: 204285

PATIENT
  Age: 62 Year
  Sex: Female

DRUGS (1)
  1. XOLAIR [Suspect]
     Indication: ASTHMA
     Dosage: 225 MG Q2W SUBCUTANEOUS
     Route: 058
     Dates: start: 20031208

REACTIONS (1)
  - PRURITUS [None]
